FAERS Safety Report 5572269-1 (Version None)
Quarter: 2007Q4

REPORT INFORMATION
  Report Type: 
  Country: None (occurrence: None)
  Receive Date: 20071221
  Receipt Date: 20071211
  Transmission Date: 20080405
  Serious: Yes (Other)
  Sender: FDA-Public Use
  Company Number: AU-PFIZER INC-2007104532

PATIENT
  Sex: Male

DRUGS (1)
  1. SUTENT [Suspect]

REACTIONS (4)
  - DIVERTICULAR PERFORATION [None]
  - GASTROINTESTINAL STOMA COMPLICATION [None]
  - IMPAIRED HEALING [None]
  - OPEN WOUND [None]
